FAERS Safety Report 4890097-7 (Version None)
Quarter: 2005Q4

REPORT INFORMATION
  Report Type: 
  Country: None (occurrence: None)
  Receive Date: 20051219
  Receipt Date: 20050524
  Transmission Date: 20060501
  Serious: No
  Sender: FDA-Public Use
  Company Number: A-US2005-09797

PATIENT
  Age: 4 Year
  Sex: Female
  Weight: 18.1 kg

DRUGS (1)
  1. ZAVESCA [Suspect]
     Indication: MUCOPOLYSACCHARIDOSIS
     Dosage: 40 MG, ORAL
     Route: 048
     Dates: start: 20050422, end: 20050518

REACTIONS (1)
  - DIARRHOEA [None]
